FAERS Safety Report 5350484-X (Version None)
Quarter: 2007Q2

REPORT INFORMATION
  Report Type: 
  Country: None (occurrence: None)
  Receive Date: 20070608
  Receipt Date: 20070529
  Transmission Date: 20071010
  Serious: Yes (Hospitalization)
  Sender: FDA-Public Use
  Company Number: PHBS2007FR09028

PATIENT
  Age: 25 Year
  Sex: Male

DRUGS (9)
  1. CYCLOSPORINE [Suspect]
     Indication: RENAL TRANSPLANT
     Dosage: 6 MG/DAY
     Route: 042
  2. CYCLOSPORINE [Suspect]
     Dosage: 275 MG, BID
     Route: 042
  3. CYCLOSPORINE [Suspect]
     Dosage: 200 MG, BID
     Route: 042
  4. MYCOPHENOLIC ACID [Suspect]
     Indication: RENAL TRANSPLANT
     Dosage: 720 MG, BID
     Route: 048
  5. BASILIXIMAB [Suspect]
     Indication: RENAL TRANSPLANT
     Dosage: 20 MG ON DAYS 0 AND 4
     Route: 042
  6. METHYLPREDNISOLONE 16MG TAB [Suspect]
     Indication: RENAL TRANSPLANT
     Dosage: 500 MG
  7. PREDNISOLONE [Suspect]
     Dosage: 1 MG/KG/DAY
  8. PREDNISOLONE [Suspect]
     Dosage: 60 MG/DAY
  9. PREDNISOLONE [Suspect]
     Dosage: 5 MG/DAY

REACTIONS (10)
  - BLOOD CREATININE INCREASED [None]
  - CATHETER RELATED INFECTION [None]
  - DISEASE RECURRENCE [None]
  - FOCAL GLOMERULOSCLEROSIS [None]
  - GINGIVAL HYPERPLASIA [None]
  - KIDNEY TRANSPLANT REJECTION [None]
  - POLYOMAVIRUS-ASSOCIATED NEPHROPATHY [None]
  - PROTEINURIA [None]
  - RENAL FAILURE ACUTE [None]
  - SEPSIS [None]
